FAERS Safety Report 4441291-0 (Version None)
Quarter: 2004Q3

REPORT INFORMATION
  Report Type: 
  Country: None (occurrence: None)
  Receive Date: 20040728
  Receipt Date: 20040505
  Transmission Date: 20050211
  Serious: No
  Sender: FDA-Public Use
  Company Number: USA040566424

PATIENT
  Age: 36 Year
  Sex: Female
  Weight: 55 kg

DRUGS (6)
  1. STRATTERA [Suspect]
     Indication: ATTENTION DEFICIT/HYPERACTIVITY DISORDER
     Dosage: 80 MG IN THE MORNING
     Dates: start: 20040329
  2. IBUPROFEN [Concomitant]
  3. MULTI-VITAMINS [Concomitant]
  4. FISH OIL [Concomitant]
  5. FLAX SEED OIL [Concomitant]
  6. CONCERTA [Concomitant]

REACTIONS (11)
  - ANGER [None]
  - BLEPHAROSPASM [None]
  - DEPRESSION [None]
  - DIZZINESS [None]
  - DRUG INEFFECTIVE [None]
  - FEELING DRUNK [None]
  - PRURITUS [None]
  - SENSATION OF HEAVINESS [None]
  - STOMACH DISCOMFORT [None]
  - URTICARIA [None]
  - VISION BLURRED [None]
